FAERS Safety Report 22529188 (Version 2)
Quarter: 2023Q4

REPORT INFORMATION
  Report Type: Spontaneous
  Country: US (occurrence: US)
  Receive Date: 20230607
  Receipt Date: 20231124
  Transmission Date: 20240110
  Serious: Yes (Other)
  Sender: FDA-Public Use
  Company Number: US-SAMSUNG BIOEPIS-SB-2023-14530

PATIENT
  Sex: Male

DRUGS (1)
  1. ONTRUZANT [Suspect]
     Active Substance: TRASTUZUMAB-DTTB
     Indication: Nausea
     Dosage: UNKNOWN
     Route: 065

REACTIONS (4)
  - Syncope [Unknown]
  - Loss of consciousness [Unknown]
  - Hypersensitivity [Unknown]
  - Product use in unapproved indication [Unknown]
